FAERS Safety Report 14199586 (Version 1)
Quarter: 2017Q4

REPORT INFORMATION
  Report Type: Spontaneous
  Country: US (occurrence: None)
  Receive Date: 20171116
  Receipt Date: 20171116
  Transmission Date: 20180321
  Serious: No
  Sender: FDA-Public Use
  Company Number: None

PATIENT
  Age: 54 Year
  Sex: Female

DRUGS (1)
  1. AMPYRA [Suspect]
     Active Substance: DALFAMPRIDINE
     Indication: MULTIPLE SCLEROSIS
     Route: 048
     Dates: start: 20171023

REACTIONS (14)
  - Urinary tract infection [None]
  - Laboratory test abnormal [None]
  - Haemoglobin urine present [None]
  - Crystal urine present [None]
  - Urine leukocyte esterase positive [None]
  - Escherichia urinary tract infection [None]
  - White blood cells urine positive [None]
  - Red blood cells urine positive [None]
  - Bacterial test positive [None]
  - Urinary tract infection fungal [None]
  - Specific gravity urine abnormal [None]
  - Nitrite urine present [None]
  - Urine ketone body present [None]
  - Protein urine [None]

NARRATIVE: CASE EVENT DATE: 20171026
